FAERS Safety Report 9978155 (Version 1)
Quarter: 2014Q1

REPORT INFORMATION
  Report Type: Spontaneous
  Country: US (occurrence: US)
  Receive Date: 20140306
  Receipt Date: 20140306
  Transmission Date: 20141002
  Serious: No
  Sender: FDA-Public Use
  Company Number: US-PFIZER INC-2014062194

PATIENT
  Sex: Female

DRUGS (3)
  1. ADVIL CONGESTION RELIEF [Suspect]
     Indication: NASAL CONGESTION
     Dosage: UNK
  2. ADVIL CONGESTION RELIEF [Suspect]
     Indication: OROPHARYNGEAL PAIN
  3. ADVIL CONGESTION RELIEF [Suspect]
     Indication: HEADACHE

REACTIONS (1)
  - Drug effect incomplete [Unknown]
